FAERS Safety Report 25664260 (Version 1)
Quarter: 2025Q3

REPORT INFORMATION
  Report Type: Report from Study
  Country: US (occurrence: US)
  Receive Date: 20250811
  Receipt Date: 20250811
  Transmission Date: 20251021
  Serious: Yes (Other)
  Sender: SUNOVION
  Company Number: US-SUMITOMO PHARMA SWITZERLAND GMBH-2025SPA009353

PATIENT
  Age: 72 Year
  Sex: Male

DRUGS (15)
  1. ORGOVYX [Suspect]
     Active Substance: RELUGOLIX
     Indication: Prostate cancer
     Route: 048
     Dates: start: 20250716, end: 20250716
  2. ORGOVYX [Suspect]
     Active Substance: RELUGOLIX
     Route: 048
  3. BICALUTAMIDE [Concomitant]
     Active Substance: BICALUTAMIDE
  4. CYCLOBENZAPRINE [Concomitant]
     Active Substance: CYCLOBENZAPRINE
  5. CYCLOSPORINE [Concomitant]
     Active Substance: CYCLOSPORINE
  6. EVEROLIMUS [Concomitant]
     Active Substance: EVEROLIMUS
  7. LOPERAMIDE [Concomitant]
     Active Substance: LOPERAMIDE
  8. MELATONIN [Concomitant]
     Active Substance: MELATONIN
  9. MG Plus Protein [Concomitant]
  10. MIRTAZAPINE [Concomitant]
     Active Substance: MIRTAZAPINE
  11. MYCOPHENOLATE MOFETIL [Concomitant]
     Active Substance: MYCOPHENOLATE MOFETIL
  12. TAMSULOSIN [Concomitant]
     Active Substance: TAMSULOSIN
  13. URSODIOL [Concomitant]
     Active Substance: URSODIOL
  14. VITAMIN D [Concomitant]
     Active Substance: VITAMIN D NOS
  15. ENSURE [Concomitant]
     Active Substance: AMINO ACIDS\DEXTROSE\ELECTROLYTES NOS\SOYBEAN OIL\VITAMINS

REACTIONS (4)
  - Haematochezia [Recovered/Resolved]
  - Oral pain [Unknown]
  - Dysuria [Unknown]
  - Fatigue [Unknown]
